FAERS Safety Report 6794501-9 (Version None)
Quarter: 2010Q2

REPORT INFORMATION
  Report Type: 
  Country: None (occurrence: None)
  Receive Date: 20100625
  Receipt Date: 20100615
  Transmission Date: 20101027
  Serious: Yes (Other)
  Sender: FDA-Public Use
  Company Number: GB-PFIZER INC-2010075106

PATIENT
  Age: 19 Year
  Sex: Female

DRUGS (4)
  1. NEURONTIN [Suspect]
     Indication: CEREBRAL PALSY
     Dosage: 500 MG, 3X/DAY
     Dates: start: 20090827
  2. CARBAMAZEPINE [Concomitant]
     Dosage: 200 MG, 2X/DAY
  3. CLONAZEPAM [Concomitant]
     Dosage: 250 MG, 2X/DAY
     Dates: start: 20040101
  4. PARACETAMOL [Concomitant]
     Dosage: 1-2 G, DAILY

REACTIONS (2)
  - DYSPHAGIA [None]
  - EPILEPSY [None]
